FAERS Safety Report 5853404-4 (Version None)
Quarter: 2008Q3

REPORT INFORMATION
  Report Type: 
  Country: None (occurrence: None)
  Receive Date: 20080820
  Receipt Date: 20080808
  Transmission Date: 20090109
  Serious: Yes (Other)
  Sender: FDA-Public Use
  Company Number: DSU-2008-01222

PATIENT
  Age: 58 Year
  Sex: Female

DRUGS (2)
  1. OLMESARTAN MEDOXOMIL [Suspect]
     Indication: HYPERTENSION
     Dosage: 40 MG (40 MG, QD) PER ORAL
     Route: 048
  2. IZAAR FORTE (INGREDIENTS UNKNOWN) [Concomitant]

REACTIONS (6)
  - DIZZINESS [None]
  - EYE SWELLING [None]
  - MUSCLE SPASMS [None]
  - NONSPECIFIC REACTION [None]
  - PAIN IN EXTREMITY [None]
  - RASH ERYTHEMATOUS [None]
